FAERS Safety Report 6471086-8 (Version None)
Quarter: 2009Q4

REPORT INFORMATION
  Report Type: 
  Country: None (occurrence: None)
  Receive Date: 20091203
  Receipt Date: 20091123
  Transmission Date: 20100525
  Serious: Yes (Other)
  Sender: FDA-Public Use
  Company Number: PHHY2009GB52761

PATIENT
  Sex: Male

DRUGS (2)
  1. NEORAL [Suspect]
     Indication: ECZEMA
  2. ANTIHISTAMINES [Concomitant]

REACTIONS (3)
  - HYPERCHLORHYDRIA [None]
  - HYPOAESTHESIA [None]
  - PARAESTHESIA [None]
